FAERS Safety Report 6785170-2 (Version None)
Quarter: 2010Q2

REPORT INFORMATION
  Report Type: 
  Country: None (occurrence: None)
  Receive Date: 20100618
  Receipt Date: 20100604
  Transmission Date: 20101027
  Serious: Yes (Life-Threatening, Hospitalization, Other)
  Sender: FDA-Public Use
  Company Number: IPC201006-000155

PATIENT
  Age: 59 Year
  Sex: Female

DRUGS (3)
  1. HYDROXYCHLOROQUINE SULFATE (HYDROXYCHLOROQUINE SULFATE) [Suspect]
     Indication: CUTANEOUS LUPUS ERYTHEMATOSUS
     Dosage: 400 MG, 2 IN 1 D,
     Dates: start: 19920101, end: 19960101
  2. CHLOROQUINE PHOSPHATE (CHLOROQUINE PHOSPHATE) (CHLOROQUINE PHOSPHATE) [Suspect]
     Indication: CUTANEOUS LUPUS ERYTHEMATOSUS
     Dosage: 300 MG, 1 IN 1 D,
     Dates: start: 19960101, end: 20010101
  3. PREDNISONE [Suspect]
     Indication: SYSTEMIC LUPUS ERYTHEMATOSUS
     Dosage: 10 MG DAILY

REACTIONS (9)
  - ARTERIOSCLEROSIS CORONARY ARTERY [None]
  - ATRIOVENTRICULAR BLOCK COMPLETE [None]
  - CARDIAC AMYLOIDOSIS [None]
  - CARDIO-RESPIRATORY ARREST [None]
  - DRUG TOXICITY [None]
  - MUSCULAR WEAKNESS [None]
  - MYOCARDIAL INFARCTION [None]
  - MYOPATHY [None]
  - PERIPHERAL SENSORY NEUROPATHY [None]
